FAERS Safety Report 5187784-2 (Version None)
Quarter: 2006Q4

REPORT INFORMATION
  Report Type: 
  Country: None (occurrence: None)
  Receive Date: 20061212
  Receipt Date: 20061205
  Transmission Date: 20070319
  Serious: Yes (Other)
  Sender: FDA-Public Use
  Company Number: 2006149825

PATIENT
  Age: 44 Year
  Sex: Male
  Weight: 102.0593 kg

DRUGS (3)
  1. LISTERINE MOUTHWASH ADVANCED ARCTIC MINT (MENTHOL, METHYL SALICYLATE, [Suspect]
     Indication: DENTAL DISORDER PROPHYLAXIS
     Dosage: 1 CAPFUL ONCE IN THE MORNING, ORAL
     Route: 048
     Dates: start: 20061101
  2. ATORVASTATIN CALCIUM [Concomitant]
  3. FENOFIBRATE [Concomitant]

REACTIONS (1)
  - BREATH ALCOHOL TEST POSITIVE [None]
